FAERS Safety Report 4582185-X (Version None)
Quarter: 2005Q1

REPORT INFORMATION
  Report Type: 
  Country: None (occurrence: None)
  Receive Date: 20050210
  Receipt Date: 20050126
  Transmission Date: 20050727
  Serious: Yes (Death)
  Sender: FDA-Public Use
  Company Number: 2004AL000788

PATIENT
  Age: 40 Year
  Sex: Male

DRUGS (5)
  1. VERAPAMIL HYDROCHLORIDE [Suspect]
     Dosage: PO
     Route: 048
  2. COCAINE (CRACK) [Suspect]
     Dosage: INH
     Route: 055
  3. VENLAFAXINE HCL [Suspect]
     Dosage: PO
     Route: 048
  4. CYCLOBENZAPRINE HCL [Suspect]
     Dosage: PO
     Route: 048
  5. ZOLPIDEM TARTRATE [Suspect]
     Dosage: PO
     Route: 048

REACTIONS (8)
  - BRADYCARDIA [None]
  - CARDIO-RESPIRATORY ARREST [None]
  - COMA [None]
  - COMPLETED SUICIDE [None]
  - DRUG ABUSER [None]
  - HYPOTENSION [None]
  - MULTIPLE DRUG OVERDOSE [None]
  - THERAPY NON-RESPONDER [None]
